FAERS Safety Report 18316449 (Version 1)
Quarter: 2020Q3

REPORT INFORMATION
  Report Type: Spontaneous
  Country: IT (occurrence: IT)
  Receive Date: 20200927
  Receipt Date: 20200927
  Transmission Date: 20201103
  Serious: Yes (Congenital Anomaly)
  Sender: FDA-Public Use
  Company Number: IT-BIOGEN-2020BI00924953

PATIENT

DRUGS (1)
  1. TYSABRI [Suspect]
     Active Substance: NATALIZUMAB
     Indication: MATERNAL EXPOSURE TIMING UNSPECIFIED
     Route: 042
     Dates: start: 20080310, end: 20200723

REACTIONS (4)
  - Foetal malformation [Unknown]
  - Pulmonary artery atresia [Unknown]
  - Congenital tricuspid valve atresia [Unknown]
  - Ventricular hypoplasia [Unknown]

NARRATIVE: CASE EVENT DATE: 20200723
